FAERS Safety Report 9757174 (Version 1)
Quarter: 2013Q4

REPORT INFORMATION
  Report Type: Spontaneous
  Country: GB (occurrence: GB)
  Receive Date: 20131213
  Receipt Date: 20131213
  Transmission Date: 20140711
  Serious: Yes (Life-Threatening, Hospitalization)
  Sender: FDA-Public Use
  Company Number: GB-AMGEN-GBRSP2013086937

PATIENT
  Age: 83 Year
  Sex: Female
  Weight: 66.3 kg

DRUGS (1)
  1. PROLIA [Suspect]
     Indication: OSTEOPOROSIS
     Dosage: UNK
     Route: 042
     Dates: start: 20131014

REACTIONS (2)
  - Muscle spasms [Unknown]
  - Hypocalcaemia [Recovered/Resolved]
